FAERS Safety Report 8632463 (Version 2)
Quarter: 2012Q4

REPORT INFORMATION
  Report Type: Report from Study
  Country: IT (occurrence: IT)
  Receive Date: 20120625
  Receipt Date: 20121124
  Transmission Date: 20130627
  Serious: Yes (Death)
  Sender: FDA-Public Use
  Company Number: PHHY2012IT053635

PATIENT
  Sex: Male
  Weight: 60 kg

DRUGS (4)
  1. CERTICAN [Suspect]
     Indication: IMMUNOSUPPRESSION
     Dosage: 75 mg, QD
     Route: 048
     Dates: start: 20071026, end: 20091019
  2. LASIX [Concomitant]
     Indication: HYPERTENSION
     Dosage: 50 mg, QD
     Dates: start: 1997
  3. NEBIVOLOL [Concomitant]
     Indication: HYPERTENSION
     Dosage: 5 mg, QD
     Dates: start: 2006
  4. CLOPIDOGREL [Concomitant]
     Indication: CARDIOVASCULAR DISORDER
     Dosage: 75 mg, QD
     Dates: start: 200802

REACTIONS (1)
  - Renal cancer [Fatal]
